FAERS Safety Report 7870213-5 (Version None)
Quarter: 2011Q4

REPORT INFORMATION
  Report Type: 
  Country: None (occurrence: None)
  Receive Date: 20111028
  Receipt Date: 20110114
  Transmission Date: 20120403
  Serious: No
  Sender: FDA-Public Use
  Company Number: US-AMGEN-USASP2011002537

PATIENT
  Sex: Female

DRUGS (1)
  1. ENBREL [Suspect]
     Indication: RHEUMATOID ARTHRITIS
     Dosage: 50 MG, QWK
     Dates: start: 20101130

REACTIONS (8)
  - GAIT DISTURBANCE [None]
  - MUSCLE SPASMS [None]
  - JOINT SWELLING [None]
  - PAIN [None]
  - JOINT RANGE OF MOTION DECREASED [None]
  - JOINT STIFFNESS [None]
  - DRUG INEFFECTIVE [None]
  - MOBILITY DECREASED [None]
